FAERS Safety Report 21294121 (Version 2)
Quarter: 2022Q3

REPORT INFORMATION
  Report Type: Spontaneous
  Country: CN (occurrence: CN)
  Receive Date: 20220905
  Receipt Date: 20220906
  Transmission Date: 20221026
  Serious: Yes (Other)
  Sender: FDA-Public Use
  Company Number: CN-MLMSERVICE-20220818-3742098-1

PATIENT
  Age: 53 Year
  Sex: Female
  Weight: 44 kg

DRUGS (8)
  1. EPIRUBICIN HYDROCHLORIDE [Suspect]
     Active Substance: EPIRUBICIN HYDROCHLORIDE
     Indication: Hepatocellular carcinoma
     Dosage: TACE TREATMENT HAD BEEN PERFORMED THREE TIMES BEFORE
     Route: 013
  2. EPIRUBICIN HYDROCHLORIDE [Suspect]
     Active Substance: EPIRUBICIN HYDROCHLORIDE
     Indication: Transcatheter arterial chemoembolisation
     Dosage: 10 MG
     Route: 013
  3. OXALIPLATIN [Suspect]
     Active Substance: OXALIPLATIN
     Indication: Hepatocellular carcinoma
     Dosage: 100 MG
     Route: 013
  4. OXALIPLATIN [Suspect]
     Active Substance: OXALIPLATIN
     Indication: Transcatheter arterial chemoembolisation
     Dosage: TACE TREATMENT HAD BEEN PERFORMED THREE TIMES BEFORE
     Route: 013
  5. GELATIN [Concomitant]
     Active Substance: GELATIN
     Indication: Hepatocellular carcinoma
     Dosage: UNK
     Route: 013
  6. GELATIN [Concomitant]
     Active Substance: GELATIN
     Indication: Transcatheter arterial chemoembolisation
  7. IODIZED OIL [Concomitant]
     Active Substance: IODIZED OIL
     Indication: Hepatocellular carcinoma
     Dosage: TACE TREATMENT HAD BEEN PERFORMED THREE TIMES BEFORE
     Route: 013
  8. IODIZED OIL [Concomitant]
     Active Substance: IODIZED OIL
     Indication: Transcatheter arterial chemoembolisation

REACTIONS (2)
  - Post embolisation syndrome [Recovered/Resolved]
  - Posterior reversible encephalopathy syndrome [Recovered/Resolved]
